FAERS Safety Report 5881423-0 (Version None)
Quarter: 2008Q3

REPORT INFORMATION
  Report Type: 
  Country: None (occurrence: None)
  Receive Date: 20080912
  Receipt Date: 20080630
  Transmission Date: 20090109
  Serious: No
  Sender: FDA-Public Use
  Company Number: US-ABBOTT-08P-163-0460358-00

PATIENT
  Sex: Female
  Weight: 113.63 kg

DRUGS (22)
  1. HUMIRA [Suspect]
     Indication: RHEUMATOID ARTHRITIS
     Dosage: ONE EVERY TWO WEEKS
     Route: 050
     Dates: end: 20070101
  2. OMEPRAZOLE [Concomitant]
     Indication: DRUG USE FOR UNKNOWN INDICATION
     Route: 048
  3. WELLBUTRIN SR [Concomitant]
     Indication: DEPRESSION
     Route: 048
  4. WELLBUTRIN SR [Concomitant]
     Indication: EX-TOBACCO USER
  5. MELOXICAM [Concomitant]
     Indication: PAIN
     Route: 048
  6. EZETIMIBE [Concomitant]
     Indication: BLOOD CHOLESTEROL
     Route: 048
     Dates: start: 19950101
  7. ESCITALOPRAM OXALATE [Concomitant]
     Indication: DEPRESSION
     Route: 048
  8. ENALAPRIL MALEATE [Concomitant]
     Indication: RENAL DISORDER
     Route: 048
  9. ENALAPRIL MALEATE [Concomitant]
     Indication: PROPHYLAXIS
  10. TOPIRAMATE [Concomitant]
     Indication: HEADACHE
     Dosage: AT BEDTIME
     Route: 048
  11. FUROSEMIDE [Concomitant]
     Indication: SWELLING
     Route: 048
  12. VERAPAMIL [Concomitant]
     Indication: BLOOD PRESSURE
     Route: 048
  13. HUMILN N [Concomitant]
     Indication: DIABETES MELLITUS
     Dosage: TWO SHOTS DAILY
     Route: 050
     Dates: start: 19970101
  14. INSULIN LISPRO [Concomitant]
     Indication: DIABETES MELLITUS
     Dosage: THREE SHOTS DAILY
     Route: 050
     Dates: start: 19970101
  15. TYLOX [Concomitant]
     Indication: PAIN
     Route: 048
     Dates: start: 20060101
  16. CYCLOBENZAPRINE HCL [Concomitant]
     Indication: MUSCLE RELAXANT THERAPY
     Dosage: EVERY NIGHT
     Route: 048
     Dates: start: 19940101
  17. TEMAZEPAM [Concomitant]
     Indication: INSOMNIA
     Dosage: AT NIGHT
     Route: 048
     Dates: start: 19980101
  18. TIZANIDINE HYDROCHLORIDE [Concomitant]
     Indication: MUSCLE SPASMS
     Route: 048
     Dates: start: 19950101
  19. VITAMIN D+ 50,000 UNITS [Concomitant]
     Indication: DRUG USE FOR UNKNOWN INDICATION
     Route: 048
     Dates: start: 20080301
  20. CYANOCOBALAMIN [Concomitant]
     Indication: DRUG USE FOR UNKNOWN INDICATION
     Route: 050
     Dates: start: 20080301
  21. ACETYLSALICYLIC ACID SRT [Concomitant]
     Indication: CEREBROVASCULAR ACCIDENT
     Route: 048
  22. ACETYLSALICYLIC ACID SRT [Concomitant]
     Indication: PROPHYLAXIS

REACTIONS (3)
  - ARTHRALGIA [None]
  - MUSCULOSKELETAL PAIN [None]
  - PAIN [None]
